FAERS Safety Report 16270926 (Version 3)
Quarter: 2019Q2

REPORT INFORMATION
  Report Type: Spontaneous
  Country: JP (occurrence: JP)
  Receive Date: 20190503
  Receipt Date: 20190625
  Transmission Date: 20190711
  Serious: Yes (Life-Threatening, Hospitalization, Other)
  Sender: FDA-Public Use
  Company Number: JP-GILEAD-2019-0404546

PATIENT
  Age: 56 Year
  Sex: Male
  Weight: 48.1 kg

DRUGS (19)
  1. SPIRONOLACTONE. [Concomitant]
     Active Substance: SPIRONOLACTONE
  2. NEXIUM [Concomitant]
     Active Substance: ESOMEPRAZOLE MAGNESIUM
  3. ANTEBATE [Concomitant]
     Active Substance: BETAMETHASONE DIPROPIONATE
  4. MIYA-BM [Concomitant]
     Active Substance: CLOSTRIDIUM BUTYRICUM SPORES STRAIN M-55
  5. LIXIANA OD [Concomitant]
     Active Substance: EDOXABAN TOSYLATE
  6. AMINOLEBAN EN [Concomitant]
     Active Substance: UNSPECIFIED INGREDIENT
  7. OXAROL [Concomitant]
     Active Substance: MAXACALCITOL
  8. EPCLUSA [Suspect]
     Active Substance: SOFOSBUVIR\VELPATASVIR
     Indication: HEPATIC CIRRHOSIS
     Dosage: 1 DOSAGE FORM
     Route: 048
     Dates: start: 20190325, end: 20190425
  9. URSODEOXYCHOLIC ACID [Concomitant]
     Active Substance: URSODIOL
  10. POLAPREZINC [Concomitant]
     Active Substance: POLAPREZINC
  11. CALONAL [Concomitant]
     Active Substance: ACETAMINOPHEN
  12. PURSENNID EX-LAX [SENNOSIDE A+B CALCIUM] [Concomitant]
  13. RIFXIMA [Concomitant]
     Active Substance: RIFAXIMIN
  14. SAMSCA [Concomitant]
     Active Substance: TOLVAPTAN
  15. FUROSEMIDE. [Concomitant]
     Active Substance: FUROSEMIDE
  16. CARTIN [LEVOCARNITINE] [Concomitant]
  17. SODIUM PICOSULFATE JG [Concomitant]
  18. KINDAVATE [Concomitant]
     Active Substance: CLOBETASONE BUTYRATE
  19. BROTIZOLAM [Concomitant]
     Active Substance: BROTIZOLAM
     Dosage: 0.25 MG, QD

REACTIONS (2)
  - Oesophageal varices haemorrhage [Recovered/Resolved]
  - Off label use [Recovered/Resolved]

NARRATIVE: CASE EVENT DATE: 20190425
